FAERS Safety Report 16367787 (Version 2)
Quarter: 2019Q2

REPORT INFORMATION
  Report Type: Spontaneous
  Country: DE (occurrence: DE)
  Receive Date: 20190529
  Receipt Date: 20190611
  Transmission Date: 20190711
  Serious: Yes (Other)
  Sender: FDA-Public Use
  Company Number: DE-AMGEN-DEUSP2019072519

PATIENT
  Age: 73 Year
  Sex: Male
  Weight: 73 kg

DRUGS (12)
  1. ARNICA [Suspect]
     Active Substance: ARNICA MONTANA FLOWER
     Indication: PRODUCT USED FOR UNKNOWN INDICATION
     Route: 065
  2. REPATHA [Suspect]
     Active Substance: EVOLOCUMAB
     Indication: PRODUCT USED FOR UNKNOWN INDICATION
     Dosage: 140 MILLIGRAM, Q2WK
     Route: 065
     Dates: start: 20180301
  3. POSTERISAN [Concomitant]
     Active Substance: LIDOCAINE
     Indication: ANORECTAL DISORDER
     Dosage: 60 MILLIGRAM, QD
  4. BISOHEXAL [Concomitant]
     Active Substance: BISOPROLOL FUMARATE
     Indication: HYPERTENSION
     Dosage: 5 MILLIGRAM, QD
     Dates: start: 20171001
  5. VITAMIN B COMPLEX [Concomitant]
     Active Substance: CYANOCOBALAMIN\DEXPANTHENOL\NIACINAMIDE\PYRIDOXINE HYDROCHLORIDE\RIBOFLAVIN 5^-PHOSPHATE SODIUM\THIAMINE HYDROCHLORIDE\VITAMIN B COMPLEX
  6. TROMCARDIN [Concomitant]
     Active Substance: MAGNESIUM ASPARTATE\POTASSIUM ASPARTATE
     Indication: ARRHYTHMIA
     Dosage: UNK UNK, TID
     Dates: start: 20171015
  7. GAVISCON [Concomitant]
     Active Substance: ALUMINUM HYDROXIDE\MAGNESIUM CARBONATE
     Indication: GASTROOESOPHAGEAL REFLUX DISEASE
     Dosage: UNK
     Dates: start: 20161224
  8. RIVAROXABAN [Concomitant]
     Active Substance: RIVAROXABAN
  9. XARELTO [Concomitant]
     Active Substance: RIVAROXABAN
     Indication: COAGULOPATHY
     Dosage: 20 MILLIGRAM, QD
     Dates: start: 20131101
  10. KETOTIFEN [Concomitant]
     Active Substance: KETOTIFEN
     Indication: MAST CELL ACTIVATION SYNDROME
     Dosage: 1 MILLIGRAM, QD
     Dates: start: 20170322
  11. TAVOR [Concomitant]
     Indication: SLEEP DISORDER
     Dosage: 1 MILLIGRAM, QD
     Dates: start: 20160314
  12. RAMIPRIL HEXAL [Concomitant]
     Active Substance: RAMIPRIL
     Indication: HYPERTENSION
     Dosage: 5 MILLIGRAM, BID
     Dates: start: 20171001

REACTIONS (18)
  - Muscle spasms [Unknown]
  - Amnesia [Not Recovered/Not Resolved]
  - Spinal osteoarthritis [Unknown]
  - Somatic symptom disorder [Unknown]
  - Influenza [Not Recovered/Not Resolved]
  - Arrhythmia [Unknown]
  - Pain [Unknown]
  - Chest pain [Unknown]
  - Muscle disorder [Unknown]
  - Confusional state [Not Recovered/Not Resolved]
  - Pudendal canal syndrome [Unknown]
  - Urogenital disorder [Unknown]
  - Muscle strain [Unknown]
  - Gastrointestinal disorder [Unknown]
  - Pseudoradicular syndrome [Unknown]
  - Joint effusion [Unknown]
  - Back pain [Not Recovered/Not Resolved]
  - Anal pruritus [Unknown]

NARRATIVE: CASE EVENT DATE: 2019
